FAERS Safety Report 25257877 (Version 1)
Quarter: 2025Q2

REPORT INFORMATION
  Report Type: Report from Study
  Country: US (occurrence: US)
  Receive Date: 20250430
  Receipt Date: 20250430
  Transmission Date: 20250717
  Serious: Yes (Hospitalization)
  Sender: ABBVIE
  Company Number: US-ABBVIE-6254230

PATIENT
  Age: 73 Year
  Sex: Female

DRUGS (2)
  1. SKYRIZI [Suspect]
     Active Substance: RISANKIZUMAB-RZAA
     Indication: Psoriasis
     Route: 058
     Dates: start: 202503, end: 202503
  2. SKYRIZI [Suspect]
     Active Substance: RISANKIZUMAB-RZAA
     Route: 058
     Dates: start: 202504

REACTIONS (3)
  - Fall [Unknown]
  - Cerebral haemorrhage [Unknown]
  - Suture insertion [Not Recovered/Not Resolved]

NARRATIVE: CASE EVENT DATE: 20250401
